FAERS Safety Report 5999681-0 (Version None)
Quarter: 2008Q4

REPORT INFORMATION
  Report Type: 
  Country: None (occurrence: None)
  Receive Date: 20081215
  Receipt Date: 20081204
  Transmission Date: 20090506
  Serious: Yes (Other)
  Sender: FDA-Public Use
  Company Number: US-AMGEN-KDL322114

PATIENT
  Sex: Female

DRUGS (1)
  1. ENBREL [Suspect]
     Indication: RHEUMATOID ARTHRITIS
     Route: 058
     Dates: start: 20010815

REACTIONS (5)
  - CEREBRAL HAEMORRHAGE [None]
  - CONTUSION [None]
  - FALL [None]
  - HEAD INJURY [None]
  - SWELLING [None]
